FAERS Safety Report 10954480 (Version 1)
Quarter: 2015Q1

REPORT INFORMATION
  Report Type: Spontaneous
  Country: US (occurrence: US)
  Receive Date: 20150325
  Receipt Date: 20150325
  Transmission Date: 20150721
  Serious: Yes (Other)
  Sender: FDA-Public Use
  Company Number: US-GLAXOSMITHKLINE-US2015036153

PATIENT
  Sex: Female

DRUGS (1)
  1. ADVAIR DISKUS [Suspect]
     Active Substance: FLUTICASONE PROPIONATE\SALMETEROL XINAFOATE
     Indication: ASTHMA
     Dosage: 1 PUFF(S), BID
     Route: 055

REACTIONS (7)
  - Oropharyngeal pain [Unknown]
  - Drug ineffective [Not Recovered/Not Resolved]
  - Secretion discharge [Unknown]
  - Respiratory tract infection [Unknown]
  - Weight increased [Unknown]
  - Dyspnoea [Unknown]
  - Pulmonary function test abnormal [Not Recovered/Not Resolved]
